FAERS Safety Report 17946635 (Version 1)
Quarter: 2020Q2

REPORT INFORMATION
  Report Type: Spontaneous
  Country: CA (occurrence: CA)
  Receive Date: 20200625
  Receipt Date: 20200625
  Transmission Date: 20200714
  Serious: Yes (Hospitalization)
  Sender: FDA-Public Use
  Company Number: CA-PFIZER INC-2020242549

PATIENT
  Age: 62 Year
  Sex: Female

DRUGS (2)
  1. PROPANOLOL HCL [Suspect]
     Active Substance: PROPRANOLOL HYDROCHLORIDE
     Indication: MIGRAINE PROPHYLAXIS
  2. PROPANOLOL HCL [Suspect]
     Active Substance: PROPRANOLOL HYDROCHLORIDE
     Indication: OFF LABEL USE
     Dosage: 2 DF, 1X/DAY
     Route: 048

REACTIONS (5)
  - Chest discomfort [Recovering/Resolving]
  - Off label use [Recovering/Resolving]
  - Wrong schedule [Recovering/Resolving]
  - Product use issue [Recovering/Resolving]
  - Product use in unapproved indication [Recovering/Resolving]
